FAERS Safety Report 24762875 (Version 1)
Quarter: 2024Q4

REPORT INFORMATION
  Report Type: Spontaneous
  Country: IN (occurrence: IN)
  Receive Date: 20241222
  Receipt Date: 20241222
  Transmission Date: 20250115
  Serious: Yes (Death)
  Sender: ROCHE
  Company Number: IN-ROCHE-10000139533

PATIENT
  Age: 60 Year
  Sex: Male
  Weight: 63.9 kg

DRUGS (1)
  1. POLIVY [Suspect]
     Active Substance: POLATUZUMAB VEDOTIN-PIIQ
     Indication: Non-Hodgkin^s lymphoma refractory
     Route: 042

REACTIONS (3)
  - Off label use [Unknown]
  - Respiratory disorder [Unknown]
  - Septic shock [Fatal]

NARRATIVE: CASE EVENT DATE: 20241130
